FAERS Safety Report 10032016 (Version 1)
Quarter: 2014Q1

REPORT INFORMATION
  Report Type: Spontaneous
  Country: JP (occurrence: JP)
  Receive Date: 20140324
  Receipt Date: 20140324
  Transmission Date: 20141002
  Serious: Yes (Other)
  Sender: FDA-Public Use
  Company Number: JP-SA-2014SA034522

PATIENT
  Age: 19 Year
  Sex: Female
  Weight: 49.7 kg

DRUGS (12)
  1. FLUDARA [Suspect]
     Indication: BONE MARROW CONDITIONING REGIMEN
     Route: 042
     Dates: start: 20120907, end: 20120911
  2. THYMOGLOBULINE [Suspect]
     Indication: BONE MARROW CONDITIONING REGIMEN
     Route: 042
     Dates: start: 20120910, end: 20120911
  3. ALKERAN [Suspect]
     Indication: BONE MARROW CONDITIONING REGIMEN
     Route: 065
     Dates: start: 20120910, end: 20120911
  4. VFEND [Concomitant]
     Indication: ANTIFUNGAL PROPHYLAXIS
     Dates: start: 20120903, end: 20130213
  5. OMEPRAL [Concomitant]
     Indication: PROPHYLAXIS AGAINST GASTROINTESTINAL ULCER
     Dates: start: 20120903, end: 20121101
  6. ZOVIRAX [Concomitant]
     Indication: ANTIVIRAL PROPHYLAXIS
     Dates: start: 20120203, end: 20130206
  7. KYTRIL [Concomitant]
     Indication: PROPHYLAXIS OF NAUSEA AND VOMITING
     Dates: start: 20120907, end: 20120911
  8. SOLU-MEDROL [Concomitant]
     Indication: PROPHYLAXIS
     Dates: start: 20120910, end: 20120911
  9. SANDIMMUN [Concomitant]
     Indication: PROPHYLAXIS
     Dates: start: 20120913, end: 20121009
  10. METHOTREXATE [Concomitant]
     Indication: PROPHYLAXIS
     Dates: start: 20120915, end: 20120925
  11. POLARAMINE [Concomitant]
     Indication: HYPERSENSITIVITY
     Dates: start: 20120917, end: 20121002
  12. RHYTHMY [Concomitant]
     Indication: INSOMNIA
     Dates: start: 20120917, end: 20120926

REACTIONS (3)
  - Febrile neutropenia [Recovered/Resolved]
  - Pseudomembranous colitis [Recovered/Resolved]
  - Oral infection [Recovered/Resolved]
